FAERS Safety Report 8349615-9 (Version None)
Quarter: 2012Q2

REPORT INFORMATION
  Report Type: 
  Country: None (occurrence: None)
  Receive Date: 20120510
  Receipt Date: 20120503
  Transmission Date: 20120825
  Serious: Yes (Hospitalization)
  Sender: FDA-Public Use
  Company Number: US-BAYER-2011-112959

PATIENT
  Age: 31 Year
  Sex: Female
  Weight: 90.703 kg

DRUGS (3)
  1. CLINDESSE [Concomitant]
     Indication: VAGINITIS BACTERIAL
     Route: 067
  2. METRONIDAZOLE [Concomitant]
     Dosage: UNK
     Dates: start: 20081002
  3. YAZ [Suspect]
     Dosage: UNK
     Route: 048
     Dates: start: 20080901, end: 20091001

REACTIONS (8)
  - INJURY [None]
  - PAIN [None]
  - GALLBLADDER DISORDER [None]
  - GENERAL PHYSICAL HEALTH DETERIORATION [None]
  - CHOLECYSTITIS ACUTE [None]
  - SCAR [None]
  - EMOTIONAL DISTRESS [None]
  - ANXIETY [None]
